FAERS Safety Report 12767170 (Version 1)
Quarter: 2016Q3

REPORT INFORMATION
  Report Type: Other
  Country: GB (occurrence: GB)
  Receive Date: 20160921
  Receipt Date: 20160921
  Transmission Date: 20161109
  Serious: Yes (Hospitalization)
  Sender: FDA-Public Use
  Company Number: GB-HIKMA PHARMACEUTICALS CO. LTD-2016GB008948

PATIENT

DRUGS (6)
  1. FUROSEMIDE                         /00032602/ [Concomitant]
     Active Substance: FUROSEMIDE
     Indication: HYPERTENSION
     Dosage: 20 MG, UNK
     Route: 048
  2. REMSIMA [Suspect]
     Active Substance: INFLIXIMAB
     Indication: PSORIATIC ARTHROPATHY
     Dosage: 3 MG/KG, 1/WEEK
     Route: 042
     Dates: start: 20160506, end: 20160506
  3. DIHYDROCODEINE [Concomitant]
     Active Substance: DIHYDROCODEINE
     Indication: HYPERTENSION
     Dosage: UNK
     Route: 048
  4. DOXAZOSIN [Concomitant]
     Active Substance: DOXAZOSIN\DOXAZOSIN MESYLATE
     Indication: HYPERTENSION
     Dosage: 8 MG, UNK
     Route: 048
  5. DILTIAZEM                          /00489702/ [Concomitant]
     Active Substance: DILTIAZEM
     Indication: HYPERTENSION
     Dosage: 120 MG, UNK
     Route: 048
  6. ADCAL                              /07357001/ [Concomitant]
     Indication: BONE DENSITY ABNORMAL
     Route: 048

REACTIONS (6)
  - Headache [Recovering/Resolving]
  - Dizziness [Recovering/Resolving]
  - Cerebral small vessel ischaemic disease [Unknown]
  - Inappropriate schedule of drug administration [Unknown]
  - Muscular weakness [Recovering/Resolving]
  - Dysarthria [Recovering/Resolving]

NARRATIVE: CASE EVENT DATE: 20160713
